FAERS Safety Report 18921039 (Version 1)
Quarter: 2021Q1

REPORT INFORMATION
  Report Type: Spontaneous
  Country: FR (occurrence: FR)
  Receive Date: 20210222
  Receipt Date: 20210222
  Transmission Date: 20210420
  Serious: Yes (Hospitalization)
  Sender: FDA-Public Use
  Company Number: FR-BAXTER-2021BAX003169

PATIENT
  Age: 11 Month
  Sex: Female
  Weight: 8.36 kg

DRUGS (2)
  1. GLUCIDION G [Suspect]
     Active Substance: DEXTROSE\POTASSIUM CHLORIDE\SODIUM CHLORIDE
     Indication: DEHYDRATION
     Dosage: 5, SOLUTION FOR INJECTION FOR INFUSION?DOSE: 1 (UNIT NOT REPORTED)
     Route: 041
     Dates: start: 20210204
  2. CHLORURE DE SODIUM A 0,9 POUR CENT BAXTER, SOLUTION POUR PERFUSION EN [Suspect]
     Active Substance: SODIUM CHLORIDE
     Indication: DEHYDRATION
     Dosage: DOSE: 1 (UNIT NOT REPORTED)
     Route: 041
     Dates: start: 20210204

REACTIONS (1)
  - Extravasation [Recovered/Resolved]

NARRATIVE: CASE EVENT DATE: 20210204
